FAERS Safety Report 19762099 (Version 1)
Quarter: 2021Q3

REPORT INFORMATION
  Report Type: Report from Study
  Country: US (occurrence: US)
  Receive Date: 20210830
  Receipt Date: 20210830
  Transmission Date: 20211014
  Serious: No
  Sender: FDA-Public Use
  Company Number: US-BIOVITRUM-2021US7871

PATIENT
  Sex: Male

DRUGS (3)
  1. HYDROCORTISONE. [Concomitant]
     Active Substance: HYDROCORTISONE
  2. SYNAGIS [Suspect]
     Active Substance: PALIVIZUMAB
     Dosage: SYNAGIS 50 MG VIAL
     Route: 030
     Dates: start: 20210803
  3. SYNAGIS [Suspect]
     Active Substance: PALIVIZUMAB
     Indication: ANTIVIRAL PROPHYLAXIS
     Dosage: SYNAGIS 100 MG VIAL
     Route: 030
     Dates: start: 20210803

REACTIONS (4)
  - Injection site induration [Recovered/Resolved]
  - Pyrexia [Unknown]
  - Injection site erythema [Recovered/Resolved]
  - Injection site inflammation [Recovered/Resolved]
